FAERS Safety Report 9089048 (Version 1)
Quarter: 2013Q1

REPORT INFORMATION
  Report Type: Spontaneous
  Country: MX (occurrence: MX)
  Receive Date: 20130201
  Receipt Date: 20130201
  Transmission Date: 20140127
  Serious: Yes (Other)
  Sender: FDA-Public Use
  Company Number: PHHY2013MX009076

PATIENT
  Age: 56 Year
  Sex: Male

DRUGS (1)
  1. EXFORGE HCT [Suspect]
     Indication: HYPERTENSION
     Dosage: 2 DF;  TABLETS (VALSARTAN 160MG, AMLODIPINE 5MG AND HYDROCHLOROTHIAZIDE 12.5MG) DAILY
     Route: 048
     Dates: start: 201006

REACTIONS (1)
  - Cardiac disorder [Recovered/Resolved]
